FAERS Safety Report 6794018-1 (Version None)
Quarter: 2010Q2

REPORT INFORMATION
  Report Type: 
  Country: None (occurrence: None)
  Receive Date: 20100624
  Receipt Date: 20070725
  Transmission Date: 20101027
  Serious: No
  Sender: FDA-Public Use
  Company Number: US-PFIZER INC-ENC200700116

PATIENT
  Sex: Female

DRUGS (6)
  1. ARGATROBAN [Suspect]
     Indication: HEPARIN-INDUCED THROMBOCYTOPENIA
     Dosage: 2 MCG/KG/MIN,FREQUENCY:  UNK
     Route: 042
     Dates: start: 20070724, end: 20070725
  2. LEVOTHYROXINE [Concomitant]
  3. METOPROLOL [Concomitant]
  4. METRONIDAZOLE [Concomitant]
  5. PANTOPRAZOLE [Concomitant]
  6. PROPOFOL [Concomitant]

REACTIONS (1)
  - COAGULATION TIME PROLONGED [None]
